FAERS Safety Report 4278375-6 (Version None)
Quarter: 2004Q1

REPORT INFORMATION
  Report Type: 
  Country: None (occurrence: None)
  Receive Date: 20040123
  Receipt Date: 20040113
  Transmission Date: 20041129
  Serious: Yes (Hospitalization)
  Sender: FDA-Public Use
  Company Number: PHBS2004JP00798

PATIENT
  Age: 45 Year
  Sex: Male
  Weight: 85 kg

DRUGS (4)
  1. VOLTAREN [Suspect]
     Indication: PAIN
     Dosage: 50 TO 150 MG/DAY
     Route: 054
     Dates: start: 20010101, end: 20030101
  2. LOXONIN [Concomitant]
  3. MUCOSTA [Concomitant]
  4. SOLANAX [Concomitant]

REACTIONS (12)
  - BLOOD CREATINE PHOSPHOKINASE INCREASED [None]
  - BLOOD CREATININE INCREASED [None]
  - BLOOD UREA INCREASED [None]
  - HYPERHIDROSIS [None]
  - IMPAIRED WORK ABILITY [None]
  - MALAISE [None]
  - MYOGLOBIN BLOOD INCREASED [None]
  - MYOGLOBIN URINE PRESENT [None]
  - NAUSEA [None]
  - RENAL FAILURE ACUTE [None]
  - RHABDOMYOLYSIS [None]
  - VOMITING [None]
